FAERS Safety Report 9311861 (Version 4)
Quarter: 2014Q1

REPORT INFORMATION
  Report Type: Spontaneous
  Country: JP (occurrence: JP)
  Receive Date: 20130528
  Receipt Date: 20140312
  Transmission Date: 20141002
  Serious: Yes (Hospitalization, Other)
  Sender: FDA-Public Use
  Company Number: PHHY2012JP071877

PATIENT
  Age: 31 Year
  Sex: Male
  Weight: 66 kg

DRUGS (19)
  1. DACARBAZINE [Concomitant]
     Indication: PANCREATIC NEUROENDOCRINE TUMOUR
     Dates: start: 20100929, end: 20110609
  2. EPIRUBICIN HYDROCHLORIDE [Concomitant]
     Indication: PANCREATIC NEUROENDOCRINE TUMOUR
     Dates: start: 20090722, end: 20100811
  3. XELODA [Concomitant]
     Indication: PANCREATIC NEUROENDOCRINE TUMOUR
     Route: 048
     Dates: start: 20110705, end: 20110912
  4. TEMODAL [Concomitant]
     Indication: PANCREATIC NEUROENDOCRINE TUMOUR
     Route: 048
     Dates: start: 20110714, end: 20110903
  5. AROGLYCEM [Concomitant]
     Indication: PANCREATIC NEUROENDOCRINE TUMOUR
     Dosage: 225 MG
     Route: 048
     Dates: start: 20121211, end: 20121224
  6. SUTENT [Concomitant]
     Indication: PANCREATIC NEUROENDOCRINE TUMOUR
     Dosage: 25 MG
     Route: 048
     Dates: start: 20130104, end: 20130107
  7. AMINO ACID [Concomitant]
     Indication: PANCREATIC NEUROENDOCRINE TUMOUR
     Dosage: 1000 ML
     Dates: start: 20130108
  8. SOSEGON [Concomitant]
     Indication: PANCREATIC NEUROENDOCRINE TUMOUR
     Dosage: 15 MG
     Dates: start: 20121224
  9. AZUNOL                             /00517002/ [Concomitant]
     Indication: PROPHYLAXIS
     Route: 048
     Dates: end: 20120929
  10. AFINITOR [Suspect]
     Indication: PANCREATIC NEUROENDOCRINE TUMOUR
     Dosage: 5 MG/DAY
     Route: 048
     Dates: start: 20111004, end: 20120111
  11. AFINITOR [Suspect]
     Dosage: 5 MG/DAY
     Route: 048
     Dates: start: 20120112, end: 20120208
  12. AFINITOR [Suspect]
     Dosage: 10 MG, DAY
     Route: 048
     Dates: start: 20120209, end: 20120321
  13. AFINITOR [Suspect]
     Dosage: 10 MG, DAY
     Route: 048
     Dates: start: 20120322, end: 20120628
  14. AFINITOR [Suspect]
     Route: 048
     Dates: start: 20120710, end: 20121118
  15. AFINITOR [Suspect]
     Dosage: 10 MG, DAY
     Route: 048
     Dates: start: 20121119, end: 20121228
  16. SANDOSTATIN LAR [Concomitant]
     Indication: PANCREATIC NEUROENDOCRINE TUMOUR
     Dosage: 30 MG
     Route: 030
     Dates: start: 20090531, end: 20130110
  17. TAKEPRON [Concomitant]
     Indication: PANCREATIC NEUROENDOCRINE TUMOUR
     Dosage: 30 MG
     Route: 048
  18. AMOBAN [Concomitant]
     Indication: INSOMNIA
     Dosage: 7.5 MG
     Route: 048
  19. LOPEMIN [Concomitant]
     Indication: PANCREATIC NEUROENDOCRINE TUMOUR
     Dosage: 2 DF, QD
     Route: 048
     Dates: start: 20120223

REACTIONS (15)
  - Blood alkaline phosphatase increased [Unknown]
  - Gamma-glutamyltransferase increased [Unknown]
  - Hepatic failure [Unknown]
  - Sepsis [Recovering/Resolving]
  - Acute respiratory distress syndrome [Recovering/Resolving]
  - Malaise [Not Recovered/Not Resolved]
  - C-reactive protein increased [Unknown]
  - Paronychia [Recovering/Resolving]
  - Rash [Recovering/Resolving]
  - Stomatitis [Recovered/Resolved]
  - Haemoglobin decreased [Unknown]
  - Haematocrit decreased [Unknown]
  - Malignant neoplasm progression [Not Recovered/Not Resolved]
  - Staphylococcus test positive [Unknown]
  - Cholangitis [Recovering/Resolving]
